FAERS Safety Report 5033443-6 (Version None)
Quarter: 2006Q2

REPORT INFORMATION
  Report Type: 
  Country: None (occurrence: None)
  Receive Date: 20060518
  Receipt Date: 20060127
  Transmission Date: 20061013
  Serious: Yes (Other)
  Sender: FDA-Public Use
  Company Number: 2005163457

PATIENT
  Sex: Female

DRUGS (5)
  1. DEPO-PROVERA [Suspect]
     Indication: CONTRACEPTION
     Dosage: SEE IMAGE
     Route: 030
     Dates: start: 20010727, end: 20010727
  2. DEPO-PROVERA [Suspect]
     Indication: CONTRACEPTION
     Dosage: SEE IMAGE
     Route: 030
     Dates: start: 20030127, end: 20030127
  3. DEPO-PROVERA [Suspect]
     Indication: CONTRACEPTION
     Dosage: SEE IMAGE
     Route: 030
     Dates: start: 20030603, end: 20030603
  4. DEPO-PROVERA [Suspect]
     Indication: CONTRACEPTION
     Dosage: SEE IMAGE
     Route: 030
     Dates: start: 20031101, end: 20031101
  5. DEPO-PROVERA [Suspect]
     Indication: CONTRACEPTION
     Dosage: SEE IMAGE
     Route: 030
     Dates: start: 20050419, end: 20050419

REACTIONS (2)
  - DRUG DOSE OMISSION [None]
  - UNINTENDED PREGNANCY [None]
